FAERS Safety Report 9879802 (Version 1)
Quarter: 2014Q1

REPORT INFORMATION
  Report Type: Spontaneous
  Country: IT (occurrence: IT)
  Receive Date: 20140206
  Receipt Date: 20140206
  Transmission Date: 20141002
  Serious: Yes (Other)
  Sender: FDA-Public Use
  Company Number: IT-MYLANLABS-2014S1001886

PATIENT
  Age: 61 Year
  Sex: Female

DRUGS (1)
  1. CLARITHROMYCIN [Suspect]
     Indication: PNEUMONIA
     Route: 065

REACTIONS (3)
  - Dermatomyositis [Recovered/Resolved]
  - Condition aggravated [Recovered/Resolved]
  - Immune thrombocytopenic purpura [Recovered/Resolved]
